FAERS Safety Report 4638574-8 (Version None)
Quarter: 2005Q2

REPORT INFORMATION
  Report Type: 
  Country: None (occurrence: None)
  Receive Date: 20050325
  Receipt Date: 20041223
  Transmission Date: 20051028
  Serious: No
  Sender: FDA-Public Use
  Company Number: USA041183982

PATIENT
  Age: 74 Year
  Sex: Female
  Weight: 59 kg

DRUGS (9)
  1. FORTEO [Suspect]
     Indication: OSTEOPOROSIS
     Dosage: 20 UG/1 DAY
     Dates: start: 20041110
  2. CALCIUM W/ VITAMIN D NOS [Concomitant]
  3. LIPITOR [Concomitant]
  4. ATIVAN [Concomitant]
  5. MULTI-VITAMIN [Concomitant]
  6. OMEGA - 3 FISH OIL [Concomitant]
  7. VITAMIN D [Concomitant]
  8. VITAMIN E [Concomitant]
  9. TEMOVATE [Concomitant]

REACTIONS (4)
  - FATIGUE [None]
  - HEADACHE [None]
  - INJECTION SITE ERYTHEMA [None]
  - NAUSEA [None]
